FAERS Safety Report 7134375-X (Version None)
Quarter: 2010Q4

REPORT INFORMATION
  Report Type: 
  Country: None (occurrence: None)
  Receive Date: 20101117
  Receipt Date: 20101105
  Transmission Date: 20110411
  Serious: Yes (Death)
  Sender: FDA-Public Use
  Company Number: 2010JP006053

PATIENT
  Age: 53 Year
  Sex: Male
  Weight: 47 kg

DRUGS (5)
  1. PROGRAF [Suspect]
     Indication: LIVER TRANSPLANT
     Dosage: ORAL ; ORAL
     Route: 048
  2. METHYLPREDNISOLONE [Suspect]
     Indication: LIVER TRANSPLANT
     Dosage: 125 MG, /D, INTRA-ARTERIAL
     Route: 013
  3. CYCLOPHOSPHAMIDE [Suspect]
     Indication: LIVER TRANSPLANT
  4. RITUXIMAB (RITUXIMAB) FORMULATION UNKNOWN [Suspect]
     Indication: LIVER TRANSPLANT
     Dosage: 375 MG/M2, D/
  5. ALPROSTADIL [Suspect]
     Indication: LIVER TRANSPLANT
     Dosage: /D, INTRA-ARTERIAL
     Route: 013

REACTIONS (4)
  - DEPRESSED LEVEL OF CONSCIOUSNESS [None]
  - ENTEROCOCCUS TEST POSITIVE [None]
  - RESPIRATORY DISORDER [None]
  - SEPSIS [None]
